FAERS Safety Report 6031202-9 (Version None)
Quarter: 2008Q4

REPORT INFORMATION
  Report Type: 
  Country: None (occurrence: None)
  Receive Date: 20081224
  Receipt Date: 20080125
  Transmission Date: 20090506
  Serious: Yes (Hospitalization)
  Sender: FDA-Public Use
  Company Number: 20080018  /

PATIENT
  Age: 15 Year
  Sex: Female
  Weight: 57 kg

DRUGS (6)
  1. VENOFER [Suspect]
     Indication: IRON DEFICIENCY ANAEMIA
     Dosage: 500 MG IN 250 ML NSS OVER 2 HR INTRAVENOUS
     Route: 042
     Dates: start: 20080123, end: 20080123
  2. VENOFER [Suspect]
     Indication: MALABSORPTION
     Dosage: 500 MG IN 250 ML NSS OVER 2 HR INTRAVENOUS
     Route: 042
     Dates: start: 20080123, end: 20080123
  3. VENOFER [Suspect]
     Indication: MENORRHAGIA
     Dosage: 500 MG IN 250 ML NSS OVER 2 HR INTRAVENOUS
     Route: 042
     Dates: start: 20080123, end: 20080123
  4. SALMETEROL XINAFOATE WITH FLUTICASONE PROPIONATE, RESPIRATORY [Concomitant]
  5. ALBUTEROL SULFATE, RESPIRATORY [Concomitant]
  6. UNSPECIFIED ORAL CONTRACEPTIVES, ORAL [Concomitant]

REACTIONS (1)
  - ANAPHYLACTOID REACTION [None]
